FAERS Safety Report 8359322-4 (Version None)
Quarter: 2012Q2

REPORT INFORMATION
  Report Type: 
  Country: None (occurrence: None)
  Receive Date: 20120515
  Receipt Date: 20120510
  Transmission Date: 20120825
  Serious: No
  Sender: FDA-Public Use
  Company Number: US-PFIZER INC-2012115648

PATIENT
  Sex: Female
  Weight: 52.608 kg

DRUGS (5)
  1. SUTENT [Suspect]
     Indication: HEPATIC NEOPLASM MALIGNANT
     Dosage: 25 MG, 1XDAY
     Dates: start: 20120404
  2. CALCIUM [Concomitant]
     Dosage: UNK
  3. AMLODIPINE [Concomitant]
     Dosage: 10 MG, UNK
  4. RANITIDINE [Concomitant]
     Dosage: UNK
  5. POTASSIUM [Concomitant]
     Dosage: UNK

REACTIONS (6)
  - ASTHENIA [None]
  - STRESS [None]
  - AMNESIA [None]
  - STOMATITIS [None]
  - DRY MOUTH [None]
  - WEIGHT DECREASED [None]
